FAERS Safety Report 16539358 (Version 1)
Quarter: 2019Q3

REPORT INFORMATION
  Report Type: Report from Study
  Country: US (occurrence: US)
  Receive Date: 20190708
  Receipt Date: 20190708
  Transmission Date: 20191004
  Serious: Yes (Other)
  Sender: FDA-Public Use
  Company Number: US-PFIZER INC-2019286167

PATIENT
  Age: 41 Year
  Sex: Female

DRUGS (1)
  1. IBRANCE [Suspect]
     Active Substance: PALBOCICLIB
     Indication: BREAST CANCER FEMALE
     Dosage: 125 MG, CYCLIC (125MG DAILY 21 DAYS ON AND 7 DAYS OFF)
     Route: 048
     Dates: start: 201806

REACTIONS (9)
  - Pain of skin [Recovered/Resolved]
  - Respiratory symptom [Recovered/Resolved]
  - Bone marrow failure [Unknown]
  - Diarrhoea [Unknown]
  - Nausea [Unknown]
  - Pyrexia [Recovered/Resolved]
  - Neuropathy peripheral [Recovered/Resolved]
  - Fatigue [Unknown]
  - Intentional dose omission [Unknown]
